FAERS Safety Report 25175737 (Version 1)
Quarter: 2025Q2

REPORT INFORMATION
  Report Type: Spontaneous
  Country: RU (occurrence: RU)
  Receive Date: 20250408
  Receipt Date: 20250408
  Transmission Date: 20250716
  Serious: Yes (Other)
  Sender: JOHNSON AND JOHNSON
  Company Number: RU-BAYER-2025A045624

PATIENT
  Age: 65 Year
  Sex: Female
  Weight: 101 kg

DRUGS (3)
  1. XARELTO [Suspect]
     Active Substance: RIVAROXABAN
     Indication: Surgery
     Route: 048
     Dates: start: 20250307, end: 20250310
  2. CEFTRIAXONE [Suspect]
     Active Substance: CEFTRIAXONE
     Indication: Surgery
     Route: 030
     Dates: start: 20250307, end: 20250310
  3. DEXAMETHASONE [Concomitant]
     Active Substance: DEXAMETHASONE
     Indication: Product used for unknown indication

REACTIONS (2)
  - Urticaria [Unknown]
  - Blister [Unknown]

NARRATIVE: CASE EVENT DATE: 20250310
